FAERS Safety Report 4265198-7 (Version None)
Quarter: 2004Q1

REPORT INFORMATION
  Report Type: 
  Country: None (occurrence: None)
  Receive Date: 20040106
  Receipt Date: 20040106
  Transmission Date: 20041129
  Serious: Yes (Hospitalization)
  Sender: FDA-Public Use
  Company Number: None

PATIENT
  Age: 61 Year
  Sex: Male
  Weight: 80.2867 kg

DRUGS (7)
  1. GLIPIZIDE [Suspect]
     Indication: DIABETES MELLITUS NON-INSULIN-DEPENDENT
     Dosage: PO BID
     Route: 048
  2. METFORMIN HCL [Concomitant]
  3. LISINOPRIL AND HYDROCHLOROTHIAZIDE [Concomitant]
  4. NORVASC [Concomitant]
  5. PLAVIX [Concomitant]
  6. KCL TAB [Concomitant]
  7. ASPIRIN [Concomitant]

REACTIONS (5)
  - ATAXIA [None]
  - DIZZINESS [None]
  - HYPOGLYCAEMIA [None]
  - PHARMACEUTICAL PRODUCT COMPLAINT [None]
  - VOMITING [None]
